FAERS Safety Report 5841005-3 (Version None)
Quarter: 2008Q3

REPORT INFORMATION
  Report Type: 
  Country: None (occurrence: None)
  Receive Date: 20080811
  Receipt Date: 20080804
  Transmission Date: 20090109
  Serious: Yes (Hospitalization)
  Sender: FDA-Public Use
  Company Number: FR-MERCK-0808FRA00007

PATIENT
  Age: 67 Year
  Sex: Male

DRUGS (5)
  1. VASERETIC [Suspect]
     Indication: ATRIAL FLUTTER
     Route: 048
     Dates: start: 20060101, end: 20080301
  2. EPOETIN BETA [Concomitant]
     Indication: ANAEMIA
     Route: 042
  3. ATORVASTATIN CALCIUM [Concomitant]
     Indication: DYSLIPIDAEMIA
     Route: 048
  4. THALIDOMIDE [Concomitant]
     Route: 065
  5. FOLIC ACID [Concomitant]
     Indication: ANAEMIA
     Route: 048

REACTIONS (1)
  - HAEMOLYTIC ANAEMIA [None]
